FAERS Safety Report 5879650-1 (Version None)
Quarter: 2008Q3

REPORT INFORMATION
  Report Type: 
  Country: None (occurrence: None)
  Receive Date: 20080911
  Receipt Date: 20080911
  Transmission Date: 20090109
  Serious: Yes (Other)
  Sender: FDA-Public Use
  Company Number: None

PATIENT
  Sex: Male
  Weight: 83.9154 kg

DRUGS (1)
  1. TIMOPTIC [Suspect]
     Indication: GLAUCOMA
     Dosage: 1 DROP EACH EYE ONCE A DAY OPHTHALMIC
     Route: 047
     Dates: start: 20070831, end: 20080305

REACTIONS (1)
  - AMNESIA [None]
